FAERS Safety Report 21245530 (Version 1)
Quarter: 2022Q3

REPORT INFORMATION
  Report Type: Spontaneous
  Country: BR (occurrence: BR)
  Receive Date: 20220824
  Receipt Date: 20220824
  Transmission Date: 20221027
  Serious: Yes (Hospitalization, Other)
  Sender: FDA-Public Use
  Company Number: BR-SA-SAC20220822001401

PATIENT
  Age: 77 Year
  Sex: Female
  Weight: 43 kg

DRUGS (10)
  1. APIDRA [Suspect]
     Active Substance: INSULIN GLULISINE
     Indication: Diabetes mellitus
     Dosage: 2 IU, PRN (ONLY WHEN NECESSARY)
     Route: 030
  2. BASAGLAR [Concomitant]
     Active Substance: INSULIN GLARGINE
     Indication: Diabetes mellitus
     Dosage: UNK
     Route: 030
  3. LORATADINE [Concomitant]
     Active Substance: LORATADINE
  4. ALLOPURINOL [Concomitant]
     Active Substance: ALLOPURINOL
  5. ASPIRIN [Concomitant]
     Active Substance: ASPIRIN
  6. CITALOPRAM [Concomitant]
     Active Substance: CITALOPRAM HYDROBROMIDE
  7. ACYLOVIR [Concomitant]
  8. OSCAL [Concomitant]
     Active Substance: CALCIUM CARBONATE
  9. IRON POLYMALTOSE [Concomitant]
     Active Substance: IRON POLYMALTOSE
  10. METOPROLOL SUCCINATE [Concomitant]
     Active Substance: METOPROLOL SUCCINATE

REACTIONS (11)
  - Diarrhoea [Unknown]
  - Vomiting [Unknown]
  - Pulmonary oedema [Unknown]
  - Hypertension [Unknown]
  - Pyrexia [Unknown]
  - Renal pain [Unknown]
  - Pruritus [Unknown]
  - Blood glucose increased [Unknown]
  - Oxygen saturation decreased [Unknown]
  - Incorrect route of product administration [Unknown]
  - Extra dose administered [Unknown]
